FAERS Safety Report 5717212-7 (Version None)
Quarter: 2008Q2

REPORT INFORMATION
  Report Type: 
  Country: None (occurrence: None)
  Receive Date: 20080424
  Receipt Date: 20080414
  Transmission Date: 20081010
  Serious: Yes (Hospitalization)
  Sender: FDA-Public Use
  Company Number: FR-PFIZER INC-2008035041

PATIENT
  Sex: Female
  Weight: 61 kg

DRUGS (5)
  1. SU-011,248 [Suspect]
     Indication: THYROID CANCER
     Dates: start: 20080313, end: 20080407
  2. OMEPRAZOLE [Concomitant]
  3. HYPERIUM [Concomitant]
  4. MIANSERIN [Concomitant]
  5. LEVOTHYROXINE SODIUM [Concomitant]

REACTIONS (3)
  - CARDIAC FAILURE [None]
  - GENERALISED OEDEMA [None]
  - PULMONARY HYPERTENSION [None]
